FAERS Safety Report 7815730-9 (Version None)
Quarter: 2011Q4

REPORT INFORMATION
  Report Type: 
  Country: None (occurrence: None)
  Receive Date: 20111012
  Receipt Date: 20110930
  Transmission Date: 20120403
  Serious: Yes (Congenital Anomaly, Other)
  Sender: FDA-Public Use
  Company Number: AUR-APL-2010-00711

PATIENT
  Sex: Female
  Weight: 2.7 kg

DRUGS (11)
  1. VALACICLOVIR [Suspect]
     Indication: PRODUCT USED FOR UNKNOWN INDICATION
     Dates: start: 20060915, end: 20061019
  2. NELFINAVIR MESYLATE [Suspect]
     Indication: HIV INFECTION
     Dosage: TRANSPLACENTAL
     Route: 064
     Dates: start: 20060102
  3. ACETAMINOPHEN [Concomitant]
  4. LOCABIOTAL (FUSAFUNGINE) [Concomitant]
  5. AMOXICILLIN [Concomitant]
  6. AMYLASE (AMYLASE) [Concomitant]
  7. ALUMINUM HYDROXIDE AND MAGNESIUM TRISILICATE [Concomitant]
  8. IRON (IRON) [Concomitant]
  9. ZIDOVUDINE [Suspect]
     Indication: HIV INFECTION
     Dosage: TRANSPLACENTAL
     Route: 064
     Dates: start: 20060102
  10. COMBIVIR [Suspect]
     Indication: HIV INFECTION
  11. LAMIVUDINE [Suspect]
     Indication: HIV INFECTION
     Dosage: TRANSPLACENTAL
     Route: 064
     Dates: start: 20060102

REACTIONS (14)
  - POSTMATURE BABY [None]
  - MATERNAL DRUGS AFFECTING FOETUS [None]
  - FOETAL GROWTH RESTRICTION [None]
  - CAESAREAN SECTION [None]
  - RETROGNATHIA [None]
  - PRODUCT CONTAMINATION [None]
  - HYPOTONIA NEONATAL [None]
  - POOR SUCKING REFLEX [None]
  - CEREBRAL VENTRICLE DILATATION [None]
  - PIERRE ROBIN SYNDROME [None]
  - DANDY-WALKER SYNDROME [None]
  - DYSPHAGIA [None]
  - CLEFT PALATE [None]
  - MITOCHONDRIAL TOXICITY [None]
